FAERS Safety Report 8393275-8 (Version None)
Quarter: 2012Q2

REPORT INFORMATION
  Report Type: 
  Country: None (occurrence: None)
  Receive Date: 20120529
  Receipt Date: 20090917
  Transmission Date: 20120825
  Serious: Yes (Hospitalization, Other)
  Sender: FDA-Public Use
  Company Number: US-ROCHE-GNE291090

PATIENT
  Age: 11 Year
  Sex: Female
  Weight: 68.073 kg

DRUGS (20)
  1. ACTIVASE [Interacting]
     Indication: VENA CAVA THROMBOSIS
     Dosage: 1 MG/HR, UNK
     Route: 042
  2. ARGATROBAN [Suspect]
     Indication: PULMONARY EMBOLISM
     Dosage: UNK
  3. ARGATROBAN [Suspect]
     Indication: THROMBOSIS PROPHYLAXIS
  4. ACTIVASE [Interacting]
     Indication: RENAL VEIN THROMBOSIS
     Dosage: 1 MG/HR, UNK
     Route: 042
  5. RANITIDINE [Suspect]
     Indication: PRODUCT USED FOR UNKNOWN INDICATION
     Dosage: UNK
  6. CEFAZOLIN [Suspect]
     Indication: PRODUCT USED FOR UNKNOWN INDICATION
     Dosage: UNK
  7. CHLORAL HYDRATE [Suspect]
     Indication: PRODUCT USED FOR UNKNOWN INDICATION
     Dosage: UNK
  8. BIVALIRUDIN [Suspect]
     Indication: DEEP VEIN THROMBOSIS
     Dosage: 125 A?G/KG, UNK
     Route: 040
  9. ARGATROBAN [Suspect]
     Indication: RENAL VEIN THROMBOSIS
  10. FONDAPARINUX SODIUM [Suspect]
     Indication: THROMBOSIS PROPHYLAXIS
     Dosage: 7.5 MG, UNK
     Route: 058
  11. HEPARIN [Suspect]
     Indication: DEEP VEIN THROMBOSIS
     Dosage: 70 U/KG, UNK,
  12. BIVALIRUDIN [Suspect]
     Indication: THROMBOSIS PROPHYLAXIS
  13. ACTIVASE [Interacting]
     Indication: PULMONARY EMBOLISM
     Dosage: 1 MG/HR, UNK
     Route: 042
  14. ENOXAPARIN [Suspect]
     Indication: THROMBOSIS PROPHYLAXIS
     Dosage: UNK
  15. BIVALIRUDIN [Suspect]
     Indication: PULMONARY EMBOLISM
  16. WARFARIN SODIUM [Suspect]
     Indication: THROMBOSIS PROPHYLAXIS
     Dosage: 5 MG, QOD
     Route: 048
  17. ARGATROBAN [Suspect]
     Indication: DEEP VEIN THROMBOSIS
     Dosage: 2 A?GKGMN, UNK
  18. ACTIVASE [Interacting]
     Indication: DEEP VEIN THROMBOSIS
     Dosage: 1 MG/HR, UNK
     Route: 042
  19. BIVALIRUDIN [Suspect]
     Indication: VENA CAVA THROMBOSIS
  20. ARGATROBAN [Suspect]
     Indication: VENA CAVA THROMBOSIS

REACTIONS (13)
  - PULMONARY EMBOLISM [None]
  - PULMONARY HAEMORRHAGE [None]
  - RESPIRATORY FAILURE [None]
  - DEEP VEIN THROMBOSIS [None]
  - PULMONARY HYPERTENSION [None]
  - VENA CAVA THROMBOSIS [None]
  - RENAL VEIN THROMBOSIS [None]
  - ABDOMINAL PAIN [None]
  - PNEUMOTHORAX [None]
  - KLEBSIELLA SEPSIS [None]
  - ANXIETY [None]
  - DRUG INTERACTION [None]
  - HYPERTENSION [None]
